FAERS Safety Report 9346449 (Version 1)
Quarter: 2013Q2

REPORT INFORMATION
  Report Type: Spontaneous
  Country: DE (occurrence: DE)
  Receive Date: 20130613
  Receipt Date: 20130613
  Transmission Date: 20140414
  Serious: Yes (Death, Other)
  Sender: FDA-Public Use
  Company Number: DE-ACTAVIS-2013-09968

PATIENT
  Age: 40 Year
  Sex: Male

DRUGS (3)
  1. PACLITAXEL (UNKNOWN) [Suspect]
     Indication: LUNG ADENOCARCINOMA METASTATIC
     Dosage: 175 MG/M2, UNK
     Route: 065
  2. CARBOPLATIN (WATSON LABORATORIES) [Suspect]
     Indication: LUNG ADENOCARCINOMA METASTATIC
     Dosage: AREA UNDER THE CURVE 6
     Route: 065
  3. AVASTIN /01555201/ [Suspect]
     Indication: LUNG ADENOCARCINOMA METASTATIC
     Dosage: 7.5 MG/M2, UNK
     Route: 065

REACTIONS (2)
  - Oesophagobronchial fistula [Recovering/Resolving]
  - Haemoptysis [Fatal]
